FAERS Safety Report 5117716-4 (Version None)
Quarter: 2006Q3

REPORT INFORMATION
  Report Type: 
  Country: None (occurrence: None)
  Receive Date: 20060926
  Receipt Date: 20060906
  Transmission Date: 20061208
  Serious: Yes (Death, Hospitalization)
  Sender: FDA-Public Use
  Company Number: FR200609001025

PATIENT
  Age: 55 Year
  Sex: Male
  Weight: 75 kg

DRUGS (10)
  1. GEMZAR [Suspect]
     Indication: LUNG ADENOCARCINOMA
     Dosage: INTRAVENOUS
     Route: 042
     Dates: start: 20060601
  2. CISPLATIN [Concomitant]
  3. CARBOPLATIN [Concomitant]
  4. NEORAL [Concomitant]
  5. CORTANCYL  /FRA/ (PREDNISONE) [Concomitant]
  6. BACTRIM DS [Concomitant]
  7. VALACYCLOVIR [Concomitant]
  8. FLUCONAZOLE [Concomitant]
  9. CACIT D3 (CALCIUM CARBONATE, COLECALCIFEROL) [Concomitant]
  10. FLECAINIDE ACETATE [Concomitant]

REACTIONS (7)
  - ANAEMIA [None]
  - CIRCULATORY COLLAPSE [None]
  - HYPERKALAEMIA [None]
  - HYPONATRAEMIA [None]
  - MYOSITIS [None]
  - RENAL FAILURE ACUTE [None]
  - THROMBOCYTOPENIA [None]
